FAERS Safety Report 5471261-5 (Version None)
Quarter: 2007Q3

REPORT INFORMATION
  Report Type: 
  Country: None (occurrence: None)
  Receive Date: 20070928
  Receipt Date: 20070927
  Transmission Date: 20080115
  Serious: Yes (Hospitalization)
  Sender: FDA-Public Use
  Company Number: FR-BRISTOL-MYERS SQUIBB COMPANY-13883889

PATIENT
  Age: 78 Year
  Sex: Female

DRUGS (8)
  1. COAPROVEL FILM-COATED TABS 300/12.5 MG [Suspect]
     Route: 048
     Dates: start: 20020101, end: 20070729
  2. NOVOMIX [Concomitant]
  3. HYPERIUM [Concomitant]
  4. PLAVIX [Concomitant]
  5. CRESTOR [Concomitant]
  6. LEVOTHYROX [Concomitant]
  7. NEUROLITHIUM [Concomitant]
  8. MONO-TILDIEM [Concomitant]

REACTIONS (3)
  - BLOOD OSMOLARITY INCREASED [None]
  - BLOOD UREA INCREASED [None]
  - DEHYDRATION [None]
